FAERS Safety Report 4522830-8 (Version None)
Quarter: 2004Q4

REPORT INFORMATION
  Report Type: 
  Country: None (occurrence: None)
  Receive Date: 20041209
  Receipt Date: 20041118
  Transmission Date: 20050328
  Serious: Yes (Life-Threatening, Hospitalization, Disabling)
  Sender: FDA-Public Use
  Company Number: US-MERCK-0411USA03191

PATIENT
  Age: 84 Year
  Sex: Female

DRUGS (5)
  1. VIOXX [Suspect]
     Indication: ARTHRALGIA
     Route: 048
     Dates: start: 19990101
  2. [THERAPY UNSPECIFIED] [Concomitant]
     Route: 065
  3. [THERAPY UNSPECIFIED] [Concomitant]
     Route: 065
  4. PAXIL [Concomitant]
     Route: 065
  5. INFLUENZA VIRUS VACCINE (UNSPECIFIED) [Suspect]
     Indication: PROPHYLAXIS
     Route: 065
     Dates: start: 20021107

REACTIONS (10)
  - AMNESIA [None]
  - CEREBRAL THROMBOSIS [None]
  - CEREBROVASCULAR ACCIDENT [None]
  - COMA [None]
  - DEAFNESS [None]
  - DEMENTIA [None]
  - FALL [None]
  - LOSS OF CONSCIOUSNESS [None]
  - PARALYSIS [None]
  - THROMBOSIS [None]
